FAERS Safety Report 6882458-1 (Version None)
Quarter: 2010Q3

REPORT INFORMATION
  Report Type: 
  Country: None (occurrence: None)
  Receive Date: 20100727
  Receipt Date: 20100714
  Transmission Date: 20110219
  Serious: Yes (Disabling, Other)
  Sender: FDA-Public Use
  Company Number: 2010P1000331

PATIENT
  Sex: Female

DRUGS (1)
  1. METOCLOPRAMIDE TABLET (NO PREF. NAME) [Suspect]
     Indication: GASTROINTESTINAL DISORDER
     Dosage: ; PO
     Route: 048
     Dates: start: 20050101, end: 20091101

REACTIONS (11)
  - ANXIETY [None]
  - DEFORMITY [None]
  - DYSKINESIA [None]
  - EMOTIONAL DISTRESS [None]
  - EXTRAPYRAMIDAL DISORDER [None]
  - IMPAIRED WORK ABILITY [None]
  - MENTAL DISORDER [None]
  - MULTIPLE INJURIES [None]
  - NERVOUS SYSTEM DISORDER [None]
  - PAIN [None]
  - PARTNER STRESS [None]
